FAERS Safety Report 21263070 (Version 1)
Quarter: 2022Q3

REPORT INFORMATION
  Report Type: Spontaneous
  Country: HU (occurrence: HU)
  Receive Date: 20220828
  Receipt Date: 20220828
  Transmission Date: 20221026
  Serious: Yes (Disabling)
  Sender: FDA-Public Use
  Company Number: None

PATIENT
  Age: 69 Year
  Sex: Female
  Weight: 67 kg

DRUGS (5)
  1. PROLIA [Suspect]
     Active Substance: DENOSUMAB
     Indication: Osteoporosis
     Dosage: 60 MILLIGRAM
     Route: 058
     Dates: start: 2018, end: 2020
  2. TELMISARTAN [Concomitant]
     Active Substance: TELMISARTAN
     Indication: Hypertension
     Dosage: 40 MILLIGRAM
     Route: 048
     Dates: start: 2015, end: 2022
  3. ASPIRIN [Concomitant]
     Active Substance: ASPIRIN
     Dosage: 75 MILLIGRAM
     Route: 048
     Dates: start: 2018, end: 2022
  4. NEBIVOLOL TEVA [Concomitant]
     Indication: Hypertension
     Dosage: 5 MILLIGRAM
     Route: 048
     Dates: start: 2012, end: 2021
  5. OMEPRAZOL-RATIOPHARM [Concomitant]
     Dosage: 20 MILLIGRAM
     Route: 048
     Dates: start: 2008, end: 2022

REACTIONS (1)
  - Exostosis [Not Recovered/Not Resolved]

NARRATIVE: CASE EVENT DATE: 20200101
